FAERS Safety Report 20206277 (Version 1)
Quarter: 2021Q4

REPORT INFORMATION
  Report Type: Spontaneous
  Country: DE (occurrence: DE)
  Receive Date: 20211220
  Receipt Date: 20211220
  Transmission Date: 20220303
  Serious: Yes (Hospitalization)
  Sender: FDA-Public Use
  Company Number: DE-ADRED-07608-01

PATIENT
  Age: 59 Year
  Sex: Male
  Weight: 54.1 kg

DRUGS (9)
  1. OXALIPLATIN [Suspect]
     Active Substance: OXALIPLATIN
     Dosage: 85 MG / M?, ACCORDING TO THE SCHEME, SOLUTION FOR INJECTION/INFUSION
     Route: 042
  2. FLUOROURACIL [Suspect]
     Active Substance: FLUOROURACIL
     Dosage: 2600 MG / M2, ACCORDING TO THE SCHEME, SOLUTION FOR INJECTION/INFUSION
     Route: 042
  3. UMECLIDINIUM BROMIDE\VILANTEROL TRIFENATATE [Concomitant]
     Active Substance: UMECLIDINIUM BROMIDE\VILANTEROL TRIFENATATE
     Dosage: 62.5 | 25 ?G, 1-0-0-0, INHALATION POWDER
     Route: 055
  4. ETORICOXIB [Concomitant]
     Active Substance: ETORICOXIB
     Dosage: 60 MG, 1-0-0-0, TABLETS
     Route: 048
  5. NALOXONE HYDROCHLORIDE\OXYCODONE HYDROCHLORIDE [Concomitant]
     Active Substance: NALOXONE HYDROCHLORIDE\OXYCODONE HYDROCHLORIDE
     Dosage: 20 | 40 MG, 1-0-1-0, SUSTAINED-RELEASE TABLETS
     Route: 048
  6. LEUCOVORIN CALCIUM [Concomitant]
     Active Substance: LEUCOVORIN CALCIUM
     Dosage: 200 MG/M?, ACCORDING TO THE SCHEME, SOLUTION FOR INJECTION/INFUSION
     Route: 042
  7. ALLOPURINOL [Concomitant]
     Active Substance: ALLOPURINOL
     Dosage: 100 MG, 1-0-0-0, TABLETS
     Route: 048
  8. ZOPICLONE [Concomitant]
     Active Substance: ZOPICLONE
     Dosage: 3.75 MG, REQUIRED, TABLETS
     Route: 048
  9. OXYCODONE [Concomitant]
     Active Substance: OXYCODONE
     Dosage: 10 MG, REQUIREMENT, SOLUTION
     Route: 048

REACTIONS (1)
  - Urinary tract infection [Recovering/Resolving]
